FAERS Safety Report 10994781 (Version 1)
Quarter: 2015Q2

REPORT INFORMATION
  Report Type: Spontaneous
  Country: US (occurrence: None)
  Receive Date: 20150406
  Receipt Date: 20150406
  Transmission Date: 20150821
  Serious: No
  Sender: FDA-Public Use
  Company Number: None

PATIENT
  Age: 75 Year
  Sex: Female
  Weight: 77.11 kg

DRUGS (18)
  1. PROAIR HFA [Concomitant]
     Active Substance: ALBUTEROL SULFATE
  2. LIDOCAINE PATCH (5%) [Concomitant]
  3. PREMARIN [Concomitant]
     Active Substance: ESTROGENS, CONJUGATED
  4. FLONASE [Concomitant]
     Active Substance: FLUTICASONE PROPIONATE
  5. SYSTANE EYEDROPS [Concomitant]
     Active Substance: POLYETHYLENE GLYCOL 400\PROPYLENE GLYCOL
  6. MULTIVITAMIN [Concomitant]
     Active Substance: VITAMINS
  7. PERCOCET [Concomitant]
     Active Substance: ACETAMINOPHEN\OXYCODONE HYDROCHLORIDE
  8. RESTASIS [Concomitant]
     Active Substance: CYCLOSPORINE
  9. VITAMIN B12 [Concomitant]
     Active Substance: CYANOCOBALAMIN
  10. WARFARIN [Concomitant]
     Active Substance: WARFARIN
  11. NEXXIUM [Concomitant]
  12. MONTELUSK [Concomitant]
  13. OXAZEPAM. [Concomitant]
     Active Substance: OXAZEPAM
  14. FENTANYL PATCH (25) [Concomitant]
  15. ADVAIR HFA [Concomitant]
     Active Substance: FLUTICASONE PROPIONATE\SALMETEROL XINAFOATE
  16. VIACTIV [Concomitant]
     Active Substance: CALCIUM\VITAMIN D\VITAMIN K5
  17. VITAMIN D [Concomitant]
     Active Substance: CHOLECALCIFEROL
  18. CELECOXIB. [Suspect]
     Active Substance: CELECOXIB
     Indication: ARTHRITIS
     Route: 048

REACTIONS (4)
  - Product substitution issue [None]
  - Pain [None]
  - Abdominal distension [None]
  - Drug ineffective [None]
